FAERS Safety Report 21300486 (Version 1)
Quarter: 2022Q3

REPORT INFORMATION
  Report Type: Spontaneous
  Country: US (occurrence: US)
  Receive Date: 20220907
  Receipt Date: 20220907
  Transmission Date: 20221026
  Serious: No
  Sender: FDA-Public Use
  Company Number: US-JNJFOC-20220908831

PATIENT
  Sex: Female

DRUGS (1)
  1. TYLENOL [Suspect]
     Active Substance: ACETAMINOPHEN
     Indication: Arthritis
     Dosage: 2 EACH TIME 3X A DAY
     Route: 065
     Dates: start: 2017

REACTIONS (1)
  - Abdominal discomfort [Recovered/Resolved]
